FAERS Safety Report 10667037 (Version 2)
Quarter: 2014Q4

REPORT INFORMATION
  Report Type: Spontaneous
  Country: GB (occurrence: GB)
  Receive Date: 20141222
  Receipt Date: 20141230
  Transmission Date: 20150529
  Serious: Yes (Life-Threatening, Hospitalization)
  Sender: FDA-Public Use
  Company Number: GB-JNJFOC-20141212559

PATIENT
  Age: 43 Year
  Sex: Male
  Weight: 70 kg

DRUGS (2)
  1. PARACETAMOL [Suspect]
     Active Substance: ACETAMINOPHEN
     Indication: TOOTHACHE
     Dosage: 80 TABLETS IN 7-10 DAYS
     Route: 065
     Dates: end: 20141026
  2. IBUPROFEN. [Concomitant]
     Active Substance: IBUPROFEN
     Indication: PAIN
     Dosage: TOOK 50 IBUPROFEN OVER 7-10 DAYS
     Route: 065

REACTIONS (2)
  - Accidental overdose [Recovered/Resolved]
  - Product packaging confusion [Unknown]
